FAERS Safety Report 8361696-5 (Version None)
Quarter: 2012Q2

REPORT INFORMATION
  Report Type: 
  Country: None (occurrence: None)
  Receive Date: 20120515
  Receipt Date: 20120508
  Transmission Date: 20120825
  Serious: Yes (Hospitalization, Other)
  Sender: FDA-Public Use
  Company Number: JP-GENZYME-THYM-1003247

PATIENT
  Sex: Male
  Weight: 11 kg

DRUGS (32)
  1. TACROLIMUS [Concomitant]
     Dosage: UNK
     Route: 065
     Dates: start: 20111201, end: 20120209
  2. AMPHOTERICIN B [Concomitant]
     Indication: ANTIFUNGAL PROPHYLAXIS
     Dosage: UNK
     Route: 065
     Dates: start: 20110910
  3. TACROLIMUS [Concomitant]
     Dosage: UNK
     Route: 065
     Dates: start: 20110209
  4. NORFLOXACIN [Concomitant]
     Indication: INFECTION PROPHYLAXIS
     Dosage: UNK
     Route: 065
     Dates: start: 20110913, end: 20111020
  5. RED BLOOD CELLS, CONCENTRATED [Concomitant]
     Indication: ANAEMIA
     Dosage: UNK
     Route: 065
     Dates: start: 20111005, end: 20111005
  6. METHOTREXATE [Concomitant]
     Dosage: UNK
     Route: 065
     Dates: start: 20110929, end: 20111029
  7. GRANISETRON HCL [Concomitant]
     Indication: PROPHYLAXIS OF NAUSEA AND VOMITING
     Dosage: UNK
     Route: 065
     Dates: start: 20110914, end: 20110920
  8. PIPERACILLIN W [Concomitant]
     Dosage: UNK
     Dates: start: 20111112, end: 20111116
  9. DEXAMETHASONE [Concomitant]
     Indication: PREMEDICATION
     Dosage: UNK
     Route: 065
     Dates: start: 20110919, end: 20110925
  10. IMMUNE CELLS HUMAN [Concomitant]
     Dosage: UNK
     Route: 065
     Dates: start: 20120105, end: 20120105
  11. METHOTREXATE [Concomitant]
     Indication: PROPHYLAXIS AGAINST GRAFT VERSUS HOST DISEASE
     Dosage: UNK
     Route: 065
     Dates: start: 20110924, end: 20110924
  12. METHYLPREDNISOLONE SODIUM SUCCINATE [Concomitant]
     Indication: GRAFT VERSUS HOST DISEASE
     Dosage: UNK
     Route: 065
     Dates: start: 20120126, end: 20120213
  13. ACYCLOVIR [Concomitant]
     Indication: ANTIVIRAL PROPHYLAXIS
     Dosage: UNK
     Route: 065
     Dates: start: 20110918, end: 20111109
  14. MICAFUNGIN SODIUM [Concomitant]
     Indication: ANTIFUNGAL PROPHYLAXIS
     Dosage: UNK
     Route: 065
     Dates: start: 20110923, end: 20111017
  15. CEFPIROME SULFATE [Concomitant]
     Indication: INFECTION PROPHYLAXIS
     Dosage: UNK
     Route: 065
     Dates: start: 20111109, end: 20111111
  16. SULFAMETHOPRIM [Concomitant]
     Indication: ANTIFUNGAL PROPHYLAXIS
     Dosage: UNK
     Route: 065
     Dates: start: 20111031
  17. FLUDARA [Suspect]
     Indication: BONE MARROW CONDITIONING REGIMEN
     Dosage: UNK
     Route: 065
     Dates: start: 20110917, end: 20110920
  18. METHOTREXATE [Concomitant]
     Dosage: UNK
     Route: 065
     Dates: start: 20111004, end: 20111004
  19. MESNA [Concomitant]
     Indication: PROPHYLAXIS
     Dosage: UNK
     Route: 065
     Dates: start: 20110918, end: 20110920
  20. IMMUNE CELLS HUMAN [Concomitant]
     Indication: CHIMERISM
     Dosage: UNK
     Dates: start: 20111222, end: 20111222
  21. THYMOGLOBULIN [Suspect]
     Indication: BONE MARROW CONDITIONING REGIMEN
     Dosage: 21 MG, QD
     Route: 042
     Dates: start: 20110918, end: 20110921
  22. METHOTREXATE [Concomitant]
     Dosage: UNK
     Route: 065
     Dates: start: 20110926, end: 20110926
  23. PIPERACILLIN W [Concomitant]
     Indication: INFECTION PROPHYLAXIS
     Dosage: UNK
     Route: 065
     Dates: start: 20110926, end: 20111009
  24. TACROLIMUS [Concomitant]
     Indication: PROPHYLAXIS AGAINST GRAFT VERSUS HOST DISEASE
     Dosage: UNK
     Route: 065
     Dates: start: 20110925, end: 20111107
  25. URSODIOL [Concomitant]
     Indication: PROPHYLAXIS
     Dosage: UNK
     Route: 065
     Dates: start: 20110913, end: 20111020
  26. CYCLOPHOSPHAMIDE [Concomitant]
     Indication: BONE MARROW CONDITIONING REGIMEN
     Dosage: UNK
     Route: 065
     Dates: start: 20110920, end: 20110920
  27. TACROLIMUS [Concomitant]
     Dosage: UNK
     Route: 065
     Dates: start: 20111108, end: 20111201
  28. CLONAZEPAM [Concomitant]
     Indication: PRODUCT USED FOR UNKNOWN INDICATION
     Dosage: UNK
     Route: 065
     Dates: start: 20110913, end: 20110918
  29. PLATELETS, CONCENTRATED [Concomitant]
     Indication: PLATELET COUNT DECREASED
     Dosage: UNK
     Route: 065
     Dates: start: 20110926, end: 20111011
  30. METHYLPREDNISOLONE SODIUM SUCCINATE [Concomitant]
     Indication: PREMEDICATION
     Dosage: UNK
     Route: 065
     Dates: start: 20110918, end: 20110922
  31. POLYMYXIN B SULFATE [Concomitant]
     Indication: INFECTION PROPHYLAXIS
     Dosage: UNK
     Route: 065
  32. METHYLPREDNISOLONE [Concomitant]
     Indication: PROPHYLAXIS AGAINST GRAFT VERSUS HOST DISEASE
     Dosage: UNK
     Dates: start: 20120214

REACTIONS (8)
  - ACUTE GRAFT VERSUS HOST DISEASE IN SKIN [None]
  - PYREXIA [None]
  - POST TRANSPLANT LYMPHOPROLIFERATIVE DISORDER [None]
  - URTICARIA [None]
  - EPSTEIN-BARR VIRAEMIA [None]
  - HEPATIC FUNCTION ABNORMAL [None]
  - CHRONIC GRAFT VERSUS HOST DISEASE [None]
  - OXYGEN SATURATION DECREASED [None]
